FAERS Safety Report 25979033 (Version 1)
Quarter: 2025Q4

REPORT INFORMATION
  Report Type: Spontaneous
  Country: US (occurrence: None)
  Receive Date: 20251029
  Receipt Date: 20251029
  Transmission Date: 20260117
  Serious: Yes (Hospitalization)
  Sender: FDA-CTU
  Company Number: None

PATIENT
  Sex: Male

DRUGS (5)
  1. SUNITINIB MALATE [Suspect]
     Active Substance: SUNITINIB MALATE
     Indication: Retroperitoneal cancer
     Dosage: 37.5 MG DAILY ORAL
     Route: 048
     Dates: start: 20250829
  2. SUNITINIB MALATE [Suspect]
     Active Substance: SUNITINIB MALATE
     Indication: Metastases to abdominal cavity
  3. SUNITINIB MALATE [Suspect]
     Active Substance: SUNITINIB MALATE
     Indication: Gastrointestinal stromal tumour
  4. IMATINIB MESYLATE [Concomitant]
     Active Substance: IMATINIB MESYLATE
  5. GLEEVEC [Concomitant]
     Active Substance: IMATINIB MESYLATE

REACTIONS (6)
  - Abdominal pain [None]
  - Diarrhoea [None]
  - Vomiting [None]
  - Chills [None]
  - Hypotension [None]
  - Infection [None]
